FAERS Safety Report 6493681-2 (Version None)
Quarter: 2009Q4

REPORT INFORMATION
  Report Type: 
  Country: None (occurrence: None)
  Receive Date: 20091214
  Receipt Date: 20091207
  Transmission Date: 20100525
  Serious: Yes (Disabling)
  Sender: FDA-Public Use
  Company Number: B0612218A

PATIENT
  Age: 27 Year
  Sex: Male

DRUGS (4)
  1. PANDEMRIX [Suspect]
     Indication: PROPHYLAXIS
     Dosage: 1INJ PER DAY
     Route: 065
  2. SERETIDE [Suspect]
     Indication: DRUG USE FOR UNKNOWN INDICATION
     Route: 065
  3. ALBUTEROL [Suspect]
     Indication: DRUG USE FOR UNKNOWN INDICATION
     Route: 065
  4. INFLUENZA VACCINE [Concomitant]
     Route: 065

REACTIONS (3)
  - HEADACHE [None]
  - PYREXIA [None]
  - TREMOR [None]
